FAERS Safety Report 10660970 (Version 4)
Quarter: 2015Q4

REPORT INFORMATION
  Report Type: Spontaneous
  Country: CA (occurrence: CA)
  Receive Date: 20141218
  Receipt Date: 20151208
  Transmission Date: 20160304
  Serious: Yes (Death, Other)
  Sender: FDA-Public Use
  Company Number: CA-ROCHE-1509170

PATIENT
  Age: 40 Year
  Sex: Female

DRUGS (3)
  1. PERJETA [Suspect]
     Active Substance: PERTUZUMAB
     Indication: LUNG NEOPLASM MALIGNANT
     Dosage: 14ML VIAL - CONCENTRATE SOLUTION.
     Route: 042
  2. TAXOTERE [Suspect]
     Active Substance: DOCETAXEL
     Indication: PRODUCT USED FOR UNKNOWN INDICATION
     Dosage: THERAPY DURATION: 9 MONTHS.
     Route: 042
  3. HERCEPTIN [Suspect]
     Active Substance: TRASTUZUMAB
     Indication: PRODUCT USED FOR UNKNOWN INDICATION
     Dosage: VIALS; THERAPY DURATION: 9 MONTHS.
     Route: 042

REACTIONS (9)
  - Drug ineffective [Unknown]
  - Diarrhoea [Fatal]
  - Wound infection [Fatal]
  - Acne [Fatal]
  - Central nervous system lesion [Fatal]
  - Lung neoplasm malignant [Fatal]
  - Malaise [Fatal]
  - Lung infection [Fatal]
  - Head injury [Fatal]
